FAERS Safety Report 9682610 (Version 1)
Quarter: 2013Q4

REPORT INFORMATION
  Report Type: Spontaneous
  Country: GB (occurrence: GB)
  Receive Date: 20131017
  Receipt Date: 20131017
  Transmission Date: 20140711
  Serious: Yes (Hospitalization, Other)
  Sender: FDA-Public Use
  Company Number: GB-DRREDDYS-GER/UKI/13/0034871

PATIENT
  Age: 68 Year
  Sex: Female
  Weight: 79.37 kg

DRUGS (13)
  1. OMEPRAZOLE [Suspect]
     Indication: HIATUS HERNIA
  2. LANSOPRAZOLE [Suspect]
     Indication: FAECES DISCOLOURED
     Dates: start: 20110205
  3. LANSOPRAZOLE [Suspect]
     Indication: GASTRITIS EROSIVE
     Route: 048
     Dates: start: 20130314, end: 20130322
  4. PIMOZIDE [Suspect]
     Indication: PRODUCT USED FOR UNKNOWN INDICATION
  5. CISAPRIDE [Concomitant]
     Indication: PRODUCT USED FOR UNKNOWN INDICATION
  6. COD LIVER OIL [Concomitant]
     Indication: PRODUCT USED FOR UNKNOWN INDICATION
  7. COPPER [Concomitant]
     Indication: PRODUCT USED FOR UNKNOWN INDICATION
  8. CYNOMEL [Concomitant]
     Indication: PRODUCT USED FOR UNKNOWN INDICATION
  9. ERYTHROMYCIN [Concomitant]
     Indication: LOWER RESPIRATORY TRACT INFECTION
  10. PREDNISOLONE [Concomitant]
     Indication: PRODUCT USED FOR UNKNOWN INDICATION
  11. VITAMIN D2 [Concomitant]
     Indication: PRODUCT USED FOR UNKNOWN INDICATION
  12. VITAMIN K [Concomitant]
     Indication: PRODUCT USED FOR UNKNOWN INDICATION
  13. ZINC [Concomitant]
     Indication: PRODUCT USED FOR UNKNOWN INDICATION

REACTIONS (8)
  - Weight increased [Unknown]
  - Breast cancer [Unknown]
  - Diarrhoea [Not Recovered/Not Resolved]
  - Electrolyte imbalance [Unknown]
  - Pain [Not Recovered/Not Resolved]
  - Feeling hot [Unknown]
  - Presyncope [Unknown]
  - Urinary tract infection [Unknown]
